FAERS Safety Report 9553740 (Version 1)
Quarter: 2013Q3

REPORT INFORMATION
  Report Type: Spontaneous
  Country: US (occurrence: None)
  Receive Date: 20130924
  Receipt Date: 20130924
  Transmission Date: 20140515
  Serious: No
  Sender: FDA-Public Use
  Company Number: None

PATIENT
  Age: 72 Year
  Sex: 0

DRUGS (1)
  1. PREDNISONE [Suspect]
     Indication: RHEUMATOID ARTHRITIS
     Dosage: 5 FIVE DAYS, 4 FIVE DAYS, 3 FL
     Route: 048
     Dates: start: 20130910, end: 20130923

REACTIONS (2)
  - Hypersensitivity [None]
  - Urticaria [None]
